FAERS Safety Report 5920071-0 (Version None)
Quarter: 2008Q4

REPORT INFORMATION
  Report Type: 
  Country: None (occurrence: None)
  Receive Date: 20081014
  Receipt Date: 20081008
  Transmission Date: 20090506
  Serious: Yes (Hospitalization)
  Sender: FDA-Public Use
  Company Number: 2008AL005905

PATIENT
  Age: 73 Year
  Sex: Male
  Weight: 89.8122 kg

DRUGS (2)
  1. DIGOXIN [Suspect]
     Indication: CARDIAC DISORDER
     Dosage: 20MG, QOD, PO
     Route: 048
     Dates: start: 20080301, end: 20080415
  2. MANY HEART MEDICATIONS (UNSPECIFIED) [Concomitant]

REACTIONS (4)
  - ATRIAL FIBRILLATION [None]
  - CARDIAC FIBRILLATION [None]
  - DYSPNOEA [None]
  - HYPOTENSION [None]
